FAERS Safety Report 21881247 (Version 1)
Quarter: 2023Q1

REPORT INFORMATION
  Report Type: Spontaneous
  Country: US (occurrence: US)
  Receive Date: 20230118
  Receipt Date: 20230118
  Transmission Date: 20230418
  Serious: No
  Sender: FDA-Public Use
  Company Number: US-SA-SAC20230117001066

PATIENT
  Sex: Female

DRUGS (14)
  1. TAXOTERE [Suspect]
     Active Substance: DOCETAXEL
     Dosage: UNK
     Route: 065
  2. ATORVASTATIN [Concomitant]
     Active Substance: ATORVASTATIN
  3. BENADRYL [Concomitant]
     Active Substance: DIPHENHYDRAMINE HYDROCHLORIDE
  4. CEPHALEXIN [Concomitant]
     Active Substance: CEPHALEXIN
  5. ELIQUIS [Concomitant]
     Active Substance: APIXABAN
  6. LISINOPRIL [Concomitant]
     Active Substance: LISINOPRIL
  7. LOPERAMIDE HYDROCHLORIDE [Concomitant]
     Active Substance: LOPERAMIDE HYDROCHLORIDE
  8. MEGESTROL [Concomitant]
     Active Substance: MEGESTROL
  9. METOPROLOL [Concomitant]
     Active Substance: METOPROLOL
  10. TRAZIMERA [Concomitant]
     Active Substance: TRASTUZUMAB-QYYP
  11. TYLENOL [Concomitant]
     Active Substance: ACETAMINOPHEN
  12. VITAMINS NOS [Concomitant]
     Active Substance: VITAMINS
  13. PERJETA [Concomitant]
     Active Substance: PERTUZUMAB
  14. CARBOPLATIN [Concomitant]
     Active Substance: CARBOPLATIN

REACTIONS (5)
  - Dizziness [Unknown]
  - Diarrhoea [Unknown]
  - Asthenia [Unknown]
  - Fatigue [Unknown]
  - Weight decreased [Unknown]
